FAERS Safety Report 8053492-3 (Version None)
Quarter: 2011Q4

REPORT INFORMATION
  Report Type: 
  Country: None (occurrence: None)
  Receive Date: 20111213
  Receipt Date: 20111004
  Transmission Date: 20120403
  Serious: No
  Sender: FDA-Public Use
  Company Number: 2011SP047376

PATIENT
  Sex: Female

DRUGS (3)
  1. LAMICTAL [Concomitant]
  2. SAPHRIS [Suspect]
     Indication: PRODUCT USED FOR UNKNOWN INDICATION
     Dosage: 10 MG;BID;
     Dates: start: 20110801
  3. RISPERIDONE [Concomitant]

REACTIONS (2)
  - ANXIETY [None]
  - TENSION [None]
